FAERS Safety Report 18109583 (Version 2)
Quarter: 2020Q3

REPORT INFORMATION
  Report Type: Spontaneous
  Country: US (occurrence: US)
  Receive Date: 20200804
  Receipt Date: 20200917
  Transmission Date: 20201103
  Serious: No
  Sender: FDA-Public Use
  Company Number: US-PFIZER INC-2020289971

PATIENT
  Sex: Female

DRUGS (1)
  1. CLINDAMYCIN PHOSPHATE. [Suspect]
     Active Substance: CLINDAMYCIN PHOSPHATE
     Indication: VAGINAL INFECTION
     Dosage: UNK
     Route: 067

REACTIONS (6)
  - Device issue [Unknown]
  - Product quality issue [Unknown]
  - Muscle spasms [Unknown]
  - Pyrexia [Unknown]
  - Condition aggravated [Unknown]
  - Poor quality product administered [Unknown]
